FAERS Safety Report 6519409-5 (Version None)
Quarter: 2009Q4

REPORT INFORMATION
  Report Type: 
  Country: None (occurrence: None)
  Receive Date: 20091228
  Receipt Date: 20091215
  Transmission Date: 20100525
  Serious: Yes (Hospitalization)
  Sender: FDA-Public Use
  Company Number: JP-MERCK-0912USA00444

PATIENT
  Age: 40 Year
  Sex: Male
  Weight: 100 kg

DRUGS (6)
  1. COZAAR [Suspect]
     Indication: HYPERTENSION
     Route: 048
     Dates: start: 20091114, end: 20091127
  2. FLOMOX [Suspect]
     Indication: PHARYNGITIS
     Route: 048
     Dates: start: 20091019, end: 20091021
  3. SG GRANULES [Suspect]
     Indication: HEADACHE
     Route: 048
  4. EXACIN [Suspect]
     Indication: PYELONEPHRITIS
     Route: 042
     Dates: start: 20091124, end: 20091127
  5. CRAVIT [Suspect]
     Indication: PYELONEPHRITIS
     Route: 048
  6. TIENAM [Concomitant]
     Indication: PYELONEPHRITIS
     Route: 042
     Dates: start: 20091127, end: 20091127

REACTIONS (4)
  - CALCULUS URINARY [None]
  - LIVER DISORDER [None]
  - PYREXIA [None]
  - TUBULOINTERSTITIAL NEPHRITIS [None]
